FAERS Safety Report 19250819 (Version 1)
Quarter: 2021Q2

REPORT INFORMATION
  Report Type: Spontaneous
  Country: FR (occurrence: FR)
  Receive Date: 20210513
  Receipt Date: 20210513
  Transmission Date: 20210717
  Serious: Yes (Hospitalization)
  Sender: FDA-Public Use
  Company Number: FR-TEVA-2021-FR-1909472

PATIENT
  Age: 58 Year
  Sex: Female
  Weight: 75 kg

DRUGS (4)
  1. OXALIPLATINE [Suspect]
     Active Substance: OXALIPLATIN
     Indication: RECTAL CANCER
     Dosage: 147.5MG
     Route: 041
     Dates: start: 20210412, end: 20210412
  2. BEVACIZUMAB. [Suspect]
     Active Substance: BEVACIZUMAB
     Indication: RECTAL CANCER
     Dosage: 350MG
     Route: 041
     Dates: start: 20210412, end: 20210412
  3. METHYLPREDNISOLONE. [Suspect]
     Active Substance: METHYLPREDNISOLONE
     Indication: RECTAL CANCER
     Dosage: 70MG
     Route: 042
     Dates: start: 20210412, end: 20210412
  4. FLUOROURACIL. [Suspect]
     Active Substance: FLUOROURACIL
     Indication: RECTAL CANCER
     Dosage: 692MG
     Route: 042
     Dates: start: 20210412, end: 20210412

REACTIONS (1)
  - Pancreatitis acute [Recovered/Resolved]

NARRATIVE: CASE EVENT DATE: 20210417
